FAERS Safety Report 6079744-4 (Version None)
Quarter: 2009Q1

REPORT INFORMATION
  Report Type: 
  Country: None (occurrence: None)
  Receive Date: 20090212
  Receipt Date: 20090128
  Transmission Date: 20090719
  Serious: Yes (Other)
  Sender: FDA-Public Use
  Company Number: 2009S1002174

PATIENT
  Sex: 0

DRUGS (6)
  1. PREZISTA [Suspect]
     Dosage: TRANSPLACENTAL
     Route: 064
     Dates: end: 20080325
  2. RITONAVIR [Suspect]
     Dosage: TRANSPLACENTAL
     Route: 064
     Dates: end: 20080325
  3. KALETRA [Suspect]
     Dosage: TRANSPLACENTAL
     Route: 064
     Dates: start: 20080326
  4. COMBIVIR [Suspect]
     Dosage: TRANSPLACENTAL
     Route: 064
     Dates: start: 20080326, end: 20081124
  5. TRUVADA [Suspect]
     Dosage: TRANSPLACENTAL
     Route: 064
     Dates: end: 20080325
  6. ZIDOVUDINE [Suspect]
     Dosage: TRANSPLACENTAL
     Route: 064
     Dates: start: 20081109, end: 20081109

REACTIONS (3)
  - MATERNAL DRUGS AFFECTING FOETUS [None]
  - PREMATURE BABY [None]
  - SMALL FOR DATES BABY [None]
